FAERS Safety Report 6635550-0 (Version None)
Quarter: 2010Q1

REPORT INFORMATION
  Report Type: 
  Country: None (occurrence: None)
  Receive Date: 20100315
  Receipt Date: 20100212
  Transmission Date: 20100710
  Serious: Yes (Other)
  Sender: FDA-Public Use
  Company Number: US-ABBOTT-10P-163-0619966-00

PATIENT
  Sex: Female
  Weight: 88.53 kg

DRUGS (5)
  1. DEPAKOTE [Suspect]
     Indication: CONVULSION
     Route: 048
     Dates: start: 20000101, end: 20060101
  2. DEPAKOTE [Suspect]
     Dates: start: 20060101
  3. DEPAKOTE ER [Suspect]
     Indication: CONVULSION
     Dosage: 2 IN THE MORNING: 3 AT NIGHT
     Route: 048
     Dates: start: 20060101
  4. FLEXERIL [Suspect]
     Indication: BACK PAIN
     Dates: start: 20060301, end: 20060401
  5. CALCIUM [Concomitant]
     Indication: DRUG USE FOR UNKNOWN INDICATION
     Dosage: OCCASIONALLY

REACTIONS (3)
  - BACK PAIN [None]
  - CONVULSION [None]
  - MEDICATION RESIDUE [None]
